FAERS Safety Report 20890503 (Version 1)
Quarter: 2022Q2

REPORT INFORMATION
  Report Type: Spontaneous
  Country: AU (occurrence: AU)
  Receive Date: 20220530
  Receipt Date: 20220530
  Transmission Date: 20220721
  Serious: Yes (Other)
  Sender: FDA-Public Use
  Company Number: AU-NOVARTISPH-NVSC2022AU122559

PATIENT
  Age: 14 Year
  Sex: Female

DRUGS (1)
  1. PAZOPANIB [Suspect]
     Active Substance: PAZOPANIB
     Indication: Sarcoma
     Dosage: UNK, CYCLIC (1 CYCLE AS SECOND LINE TREATMENT)
     Route: 065

REACTIONS (3)
  - Sarcoma [Unknown]
  - Malignant neoplasm progression [Unknown]
  - Product use issue [Unknown]
